FAERS Safety Report 21469612 (Version 1)
Quarter: 2022Q4

REPORT INFORMATION
  Report Type: Spontaneous
  Country: US (occurrence: US)
  Receive Date: 20221018
  Receipt Date: 20221018
  Transmission Date: 20230112
  Serious: No
  Sender: FDA-Public Use
  Company Number: US-ADAMAS PHARMA, LLC-2022ADA00661

PATIENT
  Sex: Female

DRUGS (4)
  1. GOCOVRI [Suspect]
     Active Substance: AMANTADINE
     Indication: Parkinson^s disease
     Dosage: UNK
     Route: 048
     Dates: start: 2019
  2. GOCOVRI [Suspect]
     Active Substance: AMANTADINE
     Dosage: 1 DOSAGE UNITS AT NIGHT
     Route: 048
  3. RYTARY [Concomitant]
     Active Substance: CARBIDOPA\LEVODOPA
  4. DEEP BRAIN STIMULATION [Concomitant]
     Dosage: UNK
     Dates: start: 2013

REACTIONS (2)
  - Oropharyngeal pain [Unknown]
  - Abnormal dreams [Unknown]
